FAERS Safety Report 11274515 (Version 1)
Quarter: 2015Q3

REPORT INFORMATION
  Report Type: Spontaneous
  Country: CA (occurrence: CA)
  Receive Date: 20150715
  Receipt Date: 20150715
  Transmission Date: 20151125
  Serious: Yes (Other)
  Sender: FDA-Public Use
  Company Number: CA-TAKEDA-2015TUS009035

PATIENT
  Age: 0 Year
  Sex: Male

DRUGS (2)
  1. PREVACID [Suspect]
     Active Substance: LANSOPRAZOLE
     Indication: GASTROOESOPHAGEAL REFLUX DISEASE
     Dosage: 7.5 MG, QD
     Route: 048
     Dates: start: 20150703
  2. VITAMIN D                          /00107901/ [Concomitant]
     Active Substance: ERGOCALCIFEROL
     Dosage: 400 IU, QD
     Route: 048

REACTIONS (2)
  - Wrong technique in product usage process [Not Recovered/Not Resolved]
  - Sputum abnormal [Unknown]

NARRATIVE: CASE EVENT DATE: 2015
